FAERS Safety Report 8499315-X (Version None)
Quarter: 2012Q3

REPORT INFORMATION
  Report Type: 
  Country: None (occurrence: None)
  Receive Date: 20120710
  Receipt Date: 20120706
  Transmission Date: 20120928
  Serious: Yes (Life-Threatening)
  Sender: FDA-Public Use
  Company Number: PHHY2012JP058288

PATIENT
  Age: 91 Year
  Sex: Male

DRUGS (1)
  1. ZOMETA [Suspect]
     Indication: PROSTATE CANCER
     Dosage: 4 MG, PER ADMINISTRATION
     Dates: start: 20090219, end: 20120410

REACTIONS (5)
  - FATIGUE [None]
  - HYPOCALCAEMIA [None]
  - RENAL FAILURE ACUTE [None]
  - ANAEMIA [None]
  - OVERDOSE [None]
